FAERS Safety Report 17824381 (Version 1)
Quarter: 2020Q2

REPORT INFORMATION
  Report Type: Spontaneous
  Country: US (occurrence: US)
  Receive Date: 20200526
  Receipt Date: 20200526
  Transmission Date: 20200714
  Serious: Yes (Hospitalization, Other)
  Sender: FDA-Public Use
  Company Number: None

PATIENT
  Age: 87 Year
  Sex: Female
  Weight: 56 kg

DRUGS (1)
  1. APIXABAN [Suspect]
     Active Substance: APIXABAN
     Indication: ATRIAL FIBRILLATION
     Route: 048
     Dates: end: 20191229

REACTIONS (4)
  - Hypoaesthesia [None]
  - Cerebral haemorrhage [None]
  - Epistaxis [None]
  - Hemiparesis [None]

NARRATIVE: CASE EVENT DATE: 20191229
